FAERS Safety Report 15860628 (Version 3)
Quarter: 2020Q4

REPORT INFORMATION
  Report Type: Report from Study
  Country: DE (occurrence: DE)
  Receive Date: 20190123
  Receipt Date: 20201113
  Transmission Date: 20210113
  Serious: Yes (Hospitalization)
  Sender: FDA-Public Use
  Company Number: DE-BRISTOL-MYERS SQUIBB COMPANY-BMS-2019-000484

PATIENT
  Age: 59 Year
  Sex: Male
  Weight: 79.5 kg

DRUGS (8)
  1. ELOTUZUMAB. [Suspect]
     Active Substance: ELOTUZUMAB
     Indication: PLASMA CELL MYELOMA
     Dosage: 795 MG, UNK
     Route: 042
     Dates: start: 20181220
  2. CIPROFLOXACIN. [Concomitant]
     Active Substance: CIPROFLOXACIN
     Indication: INFECTION PROPHYLAXIS
     Dosage: 500 MG, QD
     Route: 048
     Dates: start: 20181221
  3. LENALIDOMIDE [Suspect]
     Active Substance: LENALIDOMIDE
     Indication: PLASMA CELL MYELOMA
     Dosage: 25 MG, QD
     Route: 048
     Dates: start: 20181220
  4. DEXAMETHASONE. [Suspect]
     Active Substance: DEXAMETHASONE
     Indication: PLASMA CELL MYELOMA
     Dosage: 28 MG, UNK
     Route: 048
     Dates: start: 20181220
  5. COTRIM FORTE [Concomitant]
     Active Substance: SULFAMETHOXAZOLE\TRIMETHOPRIM
     Indication: INFECTION PROPHYLAXIS
     Dosage: 960 MG, QD
     Route: 048
     Dates: start: 20181221
  6. CARFILZOMIB [Suspect]
     Active Substance: CARFILZOMIB
     Indication: PLASMA CELL MYELOMA
     Dosage: 70.56 MG, UNK
     Route: 042
     Dates: start: 20181220
  7. ACICLOVIR [Concomitant]
     Active Substance: ACYCLOVIR
     Indication: HERPES ZOSTER
     Dosage: 400 MG, QD
     Route: 048
     Dates: start: 20181220
  8. CLEXANE [Concomitant]
     Active Substance: ENOXAPARIN SODIUM
     Indication: THROMBOSIS PROPHYLAXIS
     Dosage: 60 MG, QD
     Route: 058
     Dates: start: 20181220

REACTIONS (3)
  - Coronavirus infection [Recovered/Resolved]
  - Human bocavirus infection [Recovered/Resolved]
  - Viral upper respiratory tract infection [Recovered/Resolved]

NARRATIVE: CASE EVENT DATE: 20181231
